FAERS Safety Report 7709621 (Version 2)
Quarter: 2016Q4

REPORT INFORMATION
  Report Type: Report from Study
  Country: US (occurrence: US)
  Receive Date: 20101214
  Receipt Date: 20161017
  Transmission Date: 20170207
  Serious: No
  Sender: FDA-Public Use
  Company Number: US-ASTRAZENECA-2010SE39105

PATIENT
  Age: 80 Year
  Sex: Female

DRUGS (1)
  1. CRESTOR [Suspect]
     Active Substance: ROSUVASTATIN CALCIUM
     Indication: BLOOD CHOLESTEROL ABNORMAL
     Route: 048

REACTIONS (8)
  - Stress [Unknown]
  - Drug dose omission [Unknown]
  - Renal function test abnormal [Unknown]
  - Osteoporosis [Unknown]
  - Intentional product misuse [Unknown]
  - Blood cholesterol increased [Unknown]
  - Back disorder [Unknown]
  - Arthritis [Unknown]

NARRATIVE: CASE EVENT DATE: 2015
